FAERS Safety Report 6201876-8 (Version None)
Quarter: 2009Q2

REPORT INFORMATION
  Report Type: 
  Country: None (occurrence: None)
  Receive Date: 20090520
  Receipt Date: 20090506
  Transmission Date: 20091009
  Serious: Yes (Hospitalization)
  Sender: FDA-Public Use
  Company Number: 2009-189561-NL

PATIENT
  Age: 45 Year
  Sex: Female
  Weight: 86.2 kg

DRUGS (1)
  1. NUVARING [Suspect]
     Indication: CONTRACEPTION
     Dosage: 1 RING PER MONTH
     Dates: start: 20051101, end: 20060601

REACTIONS (12)
  - CAPILLARY DISORDER [None]
  - CHEST PAIN [None]
  - GLAUCOMA [None]
  - HYPERSENSITIVITY [None]
  - INTERNATIONAL NORMALISED RATIO DECREASED [None]
  - LIP SWELLING [None]
  - LOBAR PNEUMONIA [None]
  - PYREXIA [None]
  - RAYNAUD'S PHENOMENON [None]
  - SCLERODERMA [None]
  - THROMBOPHLEBITIS [None]
  - THROMBOPHLEBITIS SUPERFICIAL [None]
